FAERS Safety Report 6983504-7 (Version None)
Quarter: 2010Q3

REPORT INFORMATION
  Report Type: 
  Country: None (occurrence: None)
  Receive Date: 20100914
  Receipt Date: 20080710
  Transmission Date: 20110219
  Serious: No
  Sender: FDA-Public Use
  Company Number: US-WYE-H05056708

PATIENT
  Age: 86 Year
  Sex: Female
  Weight: 65.83 kg

DRUGS (5)
  1. ADVIL LIQUI-GELS [Suspect]
     Indication: ARTHRALGIA
     Dosage: 1-2 TABLETS AS NEEDED
     Route: 048
     Dates: start: 20070101
  2. CORTIZONE 10 [Concomitant]
  3. TYLENOL [Concomitant]
  4. SYNTHROID [Concomitant]
  5. VITAMIN D [Concomitant]

REACTIONS (1)
  - CONTUSION [None]
